FAERS Safety Report 8083776-4 (Version None)
Quarter: 2012Q1

REPORT INFORMATION
  Report Type: 
  Country: None (occurrence: None)
  Receive Date: 20120128
  Receipt Date: 20110201
  Transmission Date: 20120608
  Serious: No
  Sender: FDA-Public Use
  Company Number: US-ABBOTT-11P-163-0702194-00

PATIENT
  Age: 56 Year
  Sex: Male

DRUGS (7)
  1. METFFORMIN HYDROCHLORIDE [Concomitant]
     Indication: TYPE 2 DIABETES MELLITUS
     Dosage: TWICE A DAY; OR TAKES GENERIC GLYCOMET
  2. ASPIRIN [Concomitant]
     Indication: PROPHYLAXIS
  3. BETA [Concomitant]
     Indication: SUPPLEMENTATION THERAPY
  4. LISINOPRIL [Concomitant]
     Indication: BLOOD PRESSURE
  5. HUMIRA [Suspect]
     Dosage: LOADING DOSE; THEN 40MG IN 1 WK, THEN 40MG EOW
     Dates: start: 20110101
  6. HUMIRA [Suspect]
     Indication: PSORIASIS
     Dates: start: 20100101, end: 20100501
  7. GENERIC GLYCOMET [Concomitant]
     Indication: TYPE 2 DIABETES MELLITUS
     Dosage: ONCE DAILY; OR TAKES METFORMIN

REACTIONS (3)
  - NASOPHARYNGITIS [None]
  - ILL-DEFINED DISORDER [None]
  - PSORIASIS [None]
